FAERS Safety Report 17136169 (Version 2)
Quarter: 2020Q1

REPORT INFORMATION
  Report Type: Report from Study
  Country: US (occurrence: US)
  Receive Date: 20191210
  Receipt Date: 20200115
  Transmission Date: 20200409
  Serious: Yes (Other)
  Sender: FDA-Public Use
  Company Number: US-PFIZER INC-2019443542

PATIENT
  Age: 60 Year
  Sex: Male

DRUGS (1)
  1. IBRANCE [Suspect]
     Active Substance: PALBOCICLIB
     Indication: BREAST CANCER MALE
     Dosage: 125 MG CYCLIC (DAILY, 21 DAYS ON/7 DAYS OFF)
     Route: 048
     Dates: start: 20191007, end: 20191230

REACTIONS (12)
  - Fatigue [Recovered/Resolved]
  - Fall [Unknown]
  - Blood iron decreased [Unknown]
  - Facial bones fracture [Unknown]
  - White blood cell count decreased [Unknown]
  - Hepatic enzyme abnormal [Unknown]
  - Neoplasm progression [Unknown]
  - Chest pain [Recovered/Resolved]
  - Red blood cell count decreased [Unknown]
  - Neuropathy peripheral [Unknown]
  - Chest discomfort [Recovered/Resolved]
  - Gastric disorder [Recovered/Resolved]

NARRATIVE: CASE EVENT DATE: 2019
